FAERS Safety Report 6820914-2 (Version None)
Quarter: 2010Q3

REPORT INFORMATION
  Report Type: 
  Country: None (occurrence: None)
  Receive Date: 20100707
  Receipt Date: 20070723
  Transmission Date: 20110219
  Serious: No
  Sender: FDA-Public Use
  Company Number: US-PFIZER INC-2007062055

PATIENT
  Age: 58 Year
  Sex: Male

DRUGS (2)
  1. ZOLOFT [Interacting]
  2. PROVIGIL [Suspect]

REACTIONS (1)
  - DRUG INTERACTION [None]
